FAERS Safety Report 10841805 (Version 1)
Quarter: 2015Q1

REPORT INFORMATION
  Report Type: Report from Study
  Country: US (occurrence: US)
  Receive Date: 20150220
  Receipt Date: 20150220
  Transmission Date: 20150721
  Serious: No
  Sender: FDA-Public Use
  Company Number: US-ABBVIE-14P-163-1269575-00

PATIENT
  Age: 56 Year
  Sex: Female

DRUGS (5)
  1. UNKNOWN HIGH BLOOD PRESSURE MEDICATION [Concomitant]
     Indication: HYPERTENSION
  2. UNKNOWN KIDNEY MEDICATION [Concomitant]
     Indication: NEPHROPATHY
  3. HUMIRA [Suspect]
     Active Substance: ADALIMUMAB
     Dates: start: 20140707, end: 20140707
  4. HUMIRA [Suspect]
     Active Substance: ADALIMUMAB
     Indication: PSORIASIS
     Dates: start: 20140625, end: 20140625
  5. HUMIRA [Suspect]
     Active Substance: ADALIMUMAB
     Dates: start: 20140721

REACTIONS (1)
  - Injection site pain [Unknown]

NARRATIVE: CASE EVENT DATE: 20140625
